FAERS Safety Report 8588778 (Version 4)
Quarter: 2012Q4

REPORT INFORMATION
  Report Type: 
  Country: US (occurrence: US)
  Receive Date: 20120531
  Receipt Date: 20121030
  Transmission Date: 20130627
  Serious: Yes (Hospitalization)
  Sender: FDA-Public Use
  Company Number: US-BAYER-2012-052594

PATIENT
  Age: 40 Year
  Sex: Female
  Weight: 56.68 kg

DRUGS (10)
  1. OCELLA [Suspect]
     Indication: CONTRACEPTION
     Dosage: UNK
     Dates: start: 20100106, end: 20100325
  2. YASMIN [Suspect]
     Indication: CONTRACEPTION
     Dosage: UNK
     Dates: start: 20090325, end: 20100106
  3. YASMIN [Suspect]
     Indication: CONTRACEPTION
     Dosage: UNK
     Dates: start: 20100325, end: 20100627
  4. AMBIEN [Concomitant]
     Indication: SLEEP DISORDER THERAPY
     Dosage: 1 tablet daily
     Dates: start: 2009
  5. PROZAC [Concomitant]
     Indication: DEPRESSION
     Dosage: 1 tablet daily
     Dates: start: 2010
  6. VALTREX [Concomitant]
     Indication: HERPES VIRAL INFECTION NOS
     Dosage: 1 tablet daily
     Dates: start: 201002
  7. HYDROCODONE W/ACETAMINOPHEN [Concomitant]
     Dosage: 5-500, UNK
     Route: 048
     Dates: start: 20100414
  8. LORAZEPAM [Concomitant]
     Dosage: 1 mg, UNK
  9. CEPHALEXIN [Concomitant]
     Dosage: 500 mg, UNK
  10. PROMETHAZINE HYDROCHLORIDE [Concomitant]
     Dosage: 25 mg, UNK

REACTIONS (10)
  - Deep vein thrombosis [None]
  - Deep vein thrombosis [None]
  - Pulmonary embolism [None]
  - Injury [None]
  - Pain [None]
  - Chest pain [None]
  - Dyspnoea [None]
  - Palpitations [None]
  - Pain in extremity [None]
  - Oedema peripheral [None]
